FAERS Safety Report 14564148 (Version 1)
Quarter: 2018Q1

REPORT INFORMATION
  Report Type: Spontaneous
  Country: DK (occurrence: DK)
  Receive Date: 20180222
  Receipt Date: 20180222
  Transmission Date: 20180509
  Serious: Yes (Hospitalization, Other)
  Sender: FDA-Public Use
  Company Number: DK-G+W LABS-GW2018DK000014

PATIENT

DRUGS (3)
  1. METRONIDAZOLE. [Suspect]
     Active Substance: METRONIDAZOLE
     Indication: INFECTIOUS PLEURAL EFFUSION
     Dosage: 500 MG, TID
     Route: 048
  2. AMOXICILLIN. [Concomitant]
     Active Substance: AMOXICILLIN
     Indication: INFECTIOUS PLEURAL EFFUSION
  3. CLAVULANIC ACID [Concomitant]
     Active Substance: CLAVULANIC ACID
     Indication: INFECTIOUS PLEURAL EFFUSION
     Dosage: 500 MG, TID

REACTIONS (3)
  - Toxic encephalopathy [Recovered/Resolved]
  - Peripheral sensory neuropathy [Recovering/Resolving]
  - Seizure [Recovered/Resolved]
